FAERS Safety Report 24528533 (Version 1)
Quarter: 2024Q4

REPORT INFORMATION
  Report Type: Spontaneous
  Country: DE (occurrence: DE)
  Receive Date: 20241021
  Receipt Date: 20241021
  Transmission Date: 20250114
  Serious: Yes (Other)
  Sender: HILL DERMACEUTICALS, INC.
  Company Number: DE-Hill Dermaceuticals, Inc.-2163438

PATIENT
  Age: 80 Year
  Sex: Male

DRUGS (1)
  1. TOLAK [Suspect]
     Active Substance: FLUOROURACIL
     Indication: Actinic keratosis
     Dates: start: 20240607, end: 20240621

REACTIONS (5)
  - Facial paralysis [Recovered/Resolved]
  - Conjunctival disorder [Recovered/Resolved]
  - Corneal disorder [Recovered/Resolved]
  - Keratitis [Recovered/Resolved]
  - Eye irritation [Recovered/Resolved]

NARRATIVE: CASE EVENT DATE: 20240617
